FAERS Safety Report 6313852-5 (Version None)
Quarter: 2009Q3

REPORT INFORMATION
  Report Type: 
  Country: None (occurrence: None)
  Receive Date: 20090817
  Receipt Date: 20090817
  Transmission Date: 20100115
  Serious: Yes (Hospitalization)
  Sender: FDA-Public Use
  Company Number: None

PATIENT
  Age: 41 Year
  Sex: Male
  Weight: 105.6881 kg

DRUGS (2)
  1. CYMBALTA [Suspect]
     Indication: ANXIETY
     Dosage: 120MG DAILY PO   3.3 YEARS
     Route: 048
     Dates: start: 20060412, end: 20090815
  2. JUICE PLUS [Concomitant]

REACTIONS (4)
  - ANGER [None]
  - DRUG INEFFECTIVE [None]
  - PALPITATIONS [None]
  - TREMOR [None]
